FAERS Safety Report 4918775-1 (Version None)
Quarter: 2006Q1

REPORT INFORMATION
  Report Type: 
  Country: None (occurrence: None)
  Receive Date: 20060222
  Receipt Date: 20060213
  Transmission Date: 20060701
  Serious: Yes (Hospitalization)
  Sender: FDA-Public Use
  Company Number: US-JNJFOC-20060203901

PATIENT
  Sex: Female
  Weight: 63.5 kg

DRUGS (10)
  1. DURAGESIC-100 [Suspect]
     Route: 062
  2. DURAGESIC-100 [Suspect]
     Route: 062
  3. DURAGESIC-100 [Suspect]
     Route: 062
  4. PERCOCET [Concomitant]
     Route: 048
  5. PERCOCET [Concomitant]
     Indication: PAIN
     Route: 048
  6. KLONOPIN [Concomitant]
     Indication: ANXIETY
     Route: 048
  7. SKELAXIN [Concomitant]
     Route: 048
  8. ALBUTEROL [Concomitant]
     Indication: ASTHMA
     Route: 055
  9. ADVAIR DISKUS 100/50 [Concomitant]
     Route: 055
  10. ADVAIR DISKUS 100/50 [Concomitant]
     Indication: ASTHMA
     Dosage: 250 UG /50 UG, 2 IN 24 HOURS
     Route: 055

REACTIONS (1)
  - INTERVERTEBRAL DISC DEGENERATION [None]
